FAERS Safety Report 9356111 (Version 2)
Quarter: 2015Q3

REPORT INFORMATION
  Report Type: Spontaneous
  Country: IN (occurrence: IN)
  Receive Date: 20130619
  Receipt Date: 20150729
  Transmission Date: 20151125
  Serious: Yes (Other)
  Sender: FDA-Public Use
  Company Number: IN-PFIZER INC-2013179467

PATIENT
  Age: 31 Year
  Sex: Male

DRUGS (3)
  1. ORNIDAZOLE [Concomitant]
     Active Substance: ORNIDAZOLE
     Indication: DIARRHOEA
     Dosage: 250 MG, 2X/DAY
  2. METRONIDAZOLE. [Suspect]
     Active Substance: METRONIDAZOLE
     Indication: HEPATIC AMOEBIASIS
     Dosage: 400 MG 5 TABLETS DAILY
  3. DILOXANIDE FUROATE [Concomitant]
     Active Substance: DILOXANIDE FUROATE
     Indication: DIARRHOEA
     Dosage: 200 MG, 2X/DAY

REACTIONS (4)
  - Encephalopathy [Recovered/Resolved]
  - Cerebellar ataxia [Recovered/Resolved]
  - Neuropathy peripheral [Recovered/Resolved]
  - Seizure [Recovered/Resolved]
